FAERS Safety Report 8287187-8 (Version None)
Quarter: 2012Q2

REPORT INFORMATION
  Report Type: 
  Country: None (occurrence: None)
  Receive Date: 20120416
  Receipt Date: 20120409
  Transmission Date: 20120825
  Serious: Yes (Other)
  Sender: FDA-Public Use
  Company Number: BR-ROCHE-1058337

PATIENT
  Sex: Female
  Weight: 75 kg

DRUGS (2)
  1. XELODA [Suspect]
     Indication: BREAST CANCER
  2. AREDIA [Concomitant]

REACTIONS (1)
  - BLOOD TEST ABNORMAL [None]
